FAERS Safety Report 6160816-0 (Version None)
Quarter: 2009Q2

REPORT INFORMATION
  Report Type: 
  Country: None (occurrence: None)
  Receive Date: 20090420
  Receipt Date: 20090226
  Transmission Date: 20091009
  Serious: Yes (Death)
  Sender: FDA-Public Use
  Company Number: JP-SANOFI-SYNTHELABO-A01200901388

PATIENT
  Sex: Male

DRUGS (5)
  1. IRINOTECAN HCL [Concomitant]
     Dates: start: 20080225, end: 20080911
  2. LEVOLEUCOVORIN CALCIUM [Concomitant]
     Dates: start: 20080228, end: 20080911
  3. FLUOROURACIL [Concomitant]
     Dates: start: 20080228, end: 20081024
  4. ELPLAT [Suspect]
     Indication: RECTAL CANCER RECURRENT
     Route: 041
     Dates: start: 20081106, end: 20081106
  5. AVASTIN [Suspect]
     Indication: RECTAL CANCER RECURRENT
     Route: 041
     Dates: start: 20080605, end: 20081106

REACTIONS (7)
  - ARTERIOSPASM CORONARY [None]
  - GASTROINTESTINAL NECROSIS [None]
  - HEPATIC STEATOSIS [None]
  - LIVER ABSCESS [None]
  - PLATELET COUNT DECREASED [None]
  - SEPSIS [None]
  - WHITE BLOOD CELL COUNT DECREASED [None]
